FAERS Safety Report 17171748 (Version 1)
Quarter: 2019Q4

REPORT INFORMATION
  Report Type: Spontaneous
  Country: GB (occurrence: GB)
  Receive Date: 20191218
  Receipt Date: 20191218
  Transmission Date: 20200122
  Serious: Yes (Death, Hospitalization, Other)
  Sender: FDA-Public Use
  Company Number: GB-SA-200514191GDDC

PATIENT
  Age: 75 Year
  Sex: Female

DRUGS (19)
  1. LANSOPRAZOLE. [Suspect]
     Active Substance: LANSOPRAZOLE
     Indication: DUODENAL ULCER
     Dosage: DOSE AS USED: UNK
     Route: 048
     Dates: start: 200203
  2. MIDAZOLAM [Suspect]
     Active Substance: MIDAZOLAM HYDROCHLORIDE
     Indication: INDUCTION OF ANAESTHESIA
     Dosage: UNK
  3. PANCURONIUM BROMIDE. [Suspect]
     Active Substance: PANCURONIUM BROMIDE
     Indication: MUSCLE RELAXANT THERAPY
     Dosage: UNK
     Dates: start: 200203, end: 200203
  4. BUDESONIDE. [Suspect]
     Active Substance: BUDESONIDE
     Indication: ASTHMA
     Dosage: UNK
     Route: 055
     Dates: start: 200203
  5. QUININE SULFATE. [Suspect]
     Active Substance: QUININE SULFATE
     Indication: MUSCLE SPASMS
     Dosage: UNK
  6. PANCURONIUM BROMIDE. [Suspect]
     Active Substance: PANCURONIUM BROMIDE
     Indication: MUSCLE SPASMS
     Dosage: UNK
  7. LISINOPRIL. [Suspect]
     Active Substance: LISINOPRIL
     Indication: HYPERTENSION
     Dosage: UNK
     Route: 048
     Dates: start: 200203
  8. GLYCERYL TRINITRATE [Suspect]
     Active Substance: NITROGLYCERIN
     Indication: PAIN
     Dosage: UNK
     Route: 048
     Dates: start: 200203
  9. GLYCERYL TRINITRATE [Suspect]
     Active Substance: NITROGLYCERIN
     Indication: ANGINA PECTORIS
  10. PROPOFOL. [Suspect]
     Active Substance: PROPOFOL
     Indication: ANAESTHESIA
     Dosage: UNK
     Route: 042
     Dates: start: 200203, end: 200203
  11. ARAVA [Suspect]
     Active Substance: LEFLUNOMIDE
     Indication: RHEUMATOID ARTHRITIS
     Dosage: 20 MG, QD
     Dates: start: 200203
  12. MIDAZOLAM [Suspect]
     Active Substance: MIDAZOLAM HYDROCHLORIDE
     Indication: ANAESTHESIA
     Dosage: UNK
     Route: 042
     Dates: start: 200203, end: 200203
  13. FENTANYL. [Suspect]
     Active Substance: FENTANYL
     Indication: ANAESTHESIA
     Dosage: UNK
     Route: 042
     Dates: start: 200203, end: 200203
  14. PROPOFOL. [Suspect]
     Active Substance: PROPOFOL
     Indication: INDUCTION OF ANAESTHESIA
     Dosage: UNK
  15. DILTIAZEM HYDROCHLORIDE. [Suspect]
     Active Substance: DILTIAZEM HYDROCHLORIDE
     Indication: HYPERTENSION
     Dosage: UNK
  16. ACETYLSALICYLIC ACID/ASCORBIC ACID [Suspect]
     Active Substance: ACETAMINOPHEN\ASCORBIC ACID
     Indication: ANGINA PECTORIS
     Dosage: UNK
     Dates: start: 200203
  17. ATORVASTATIN [Suspect]
     Active Substance: ATORVASTATIN
     Indication: HYPERCHOLESTEROLAEMIA
     Dosage: UNK
     Dates: start: 1999
  18. FENTANYL. [Suspect]
     Active Substance: FENTANYL
     Indication: INDUCTION OF ANAESTHESIA
     Dosage: UNK
     Route: 065
  19. COCODAMOL [Suspect]
     Active Substance: ACETAMINOPHEN\CODEINE PHOSPHATE
     Indication: RHEUMATOID ARTHRITIS
     Dosage: UNK
     Route: 005
     Dates: start: 200203

REACTIONS (4)
  - Labile blood pressure [Fatal]
  - Renal failure [Fatal]
  - Hepatic failure [Fatal]
  - Haematemesis [Fatal]
